FAERS Safety Report 16427700 (Version 5)
Quarter: 2019Q3

REPORT INFORMATION
  Report Type: Spontaneous
  Country: MX (occurrence: MX)
  Receive Date: 20190613
  Receipt Date: 20190924
  Transmission Date: 20191004
  Serious: Yes (Hospitalization, Disabling, Other)
  Sender: FDA-Public Use
  Company Number: MX-ASTRAZENECA-2019SE46959

PATIENT
  Age: 92 Year
  Sex: Female
  Weight: 56 kg

DRUGS (18)
  1. ATACAND [Suspect]
     Active Substance: CANDESARTAN CILEXETIL
     Indication: HYPERTENSION
     Route: 048
     Dates: end: 20190627
  2. ERDOSTEINA [Concomitant]
     Dates: start: 20190809
  3. PULMICORT TURBUHALER [Suspect]
     Active Substance: BUDESONIDE
     Indication: PNEUMONIA
     Dosage: 3 NEBULIZATION PER DAY WITH 3 OR 4 UNITS PER NEBULIZATION
     Route: 055
     Dates: start: 20150316
  4. PULMICORT TURBUHALER [Suspect]
     Active Substance: BUDESONIDE
     Indication: PNEUMONIA
     Dosage: 1 NEBULIZATION PER DAY OF 3 OR 4 UNITS
     Route: 055
     Dates: end: 201905
  5. LEVODOPA/CARBIDOPA [Concomitant]
     Active Substance: CARBIDOPA\LEVODOPA
     Indication: PARKINSON^S DISEASE
     Dosage: HALF A TABLET EVERY EIGHT HOURS
     Route: 048
     Dates: start: 201902
  6. VITAMIN C [Concomitant]
     Active Substance: ASCORBIC ACID
     Indication: ADJUVANT THERAPY
     Dates: start: 201902
  7. DOSETEIN [Concomitant]
     Indication: ILL-DEFINED DISORDER
     Route: 055
  8. PULMICORT TURBUHALER [Suspect]
     Active Substance: BUDESONIDE
     Indication: PRODUCTIVE COUGH
     Dosage: 3 NEBULIZATION PER DAY WITH 3 OR 4 UNITS PER NEBULIZATION
     Route: 055
     Dates: start: 20150316
  9. LEVODOPA/CARBIDOPA [Concomitant]
     Active Substance: CARBIDOPA\LEVODOPA
     Indication: PARKINSON^S DISEASE
     Route: 048
     Dates: start: 20180425
  10. DOSETEIN [Concomitant]
     Indication: INFLAMMATION
     Route: 055
  11. MOTILIUM [Concomitant]
     Active Substance: DOMPERIDONE
     Indication: DYSPHAGIA
     Route: 048
     Dates: start: 20190521
  12. PULMICORT TURBUHALER [Suspect]
     Active Substance: BUDESONIDE
     Indication: PRODUCTIVE COUGH
     Dosage: 1 NEBULIZATION PER DAY OF 3 OR 4 UNITS
     Route: 055
     Dates: end: 201905
  13. ATACAND [Suspect]
     Active Substance: CANDESARTAN CILEXETIL
     Indication: HYPERTENSION
     Route: 048
  14. NUTRICION ENTERAL [Concomitant]
     Indication: MALNUTRITION
     Route: 065
  15. LEVODOPA/CARBIDOPA [Concomitant]
     Active Substance: CARBIDOPA\LEVODOPA
     Indication: PARKINSON^S DISEASE
     Dosage: 250/25 MG
     Route: 048
     Dates: start: 20180425
  16. ATACAND [Suspect]
     Active Substance: CANDESARTAN CILEXETIL
     Indication: HYPERTENSION
     Route: 048
     Dates: start: 201712
  17. ATROVENT [Concomitant]
     Active Substance: IPRATROPIUM BROMIDE
     Indication: PRODUCTIVE COUGH
     Route: 055
  18. ATACAND [Suspect]
     Active Substance: CANDESARTAN CILEXETIL
     Indication: HYPERTENSION
     Route: 048
     Dates: start: 20181201, end: 20190626

REACTIONS (31)
  - Gait inability [Not Recovered/Not Resolved]
  - Feeling abnormal [Recovered/Resolved]
  - Hyponatraemia [Recovered/Resolved]
  - Kidney infection [Recovered/Resolved]
  - Posture abnormal [Recovering/Resolving]
  - Sputum retention [Recovered/Resolved]
  - Product dose omission [Recovered/Resolved]
  - Medication error [Not Recovered/Not Resolved]
  - Fall [Recovered/Resolved]
  - Nausea [Unknown]
  - Hypertension [Not Recovered/Not Resolved]
  - Intentional product misuse [Not Recovered/Not Resolved]
  - Productive cough [Recovered/Resolved]
  - Urinary tract infection [Recovered/Resolved]
  - Insomnia [Not Recovered/Not Resolved]
  - Dry mouth [Recovering/Resolving]
  - Dysphagia [Recovered/Resolved]
  - Drug ineffective [Recovered/Resolved]
  - Humerus fracture [Recovered/Resolved]
  - Somnolence [Recovering/Resolving]
  - Muscle atrophy [Not Recovered/Not Resolved]
  - Dyskinesia [Recovered/Resolved]
  - Hypoaesthesia [Recovered/Resolved]
  - Wrong technique in product usage process [Unknown]
  - Vomiting [Recovered/Resolved]
  - Altered state of consciousness [Recovering/Resolving]
  - Diabetic coma [Unknown]
  - Diarrhoea [Not Recovered/Not Resolved]
  - Weight increased [Unknown]
  - Swollen tongue [Recovered/Resolved]
  - Eye swelling [Recovered/Resolved]

NARRATIVE: CASE EVENT DATE: 2015
